FAERS Safety Report 25528229 (Version 2)
Quarter: 2025Q3

REPORT INFORMATION
  Report Type: Spontaneous
  Country: EU (occurrence: EU)
  Receive Date: 20250708
  Receipt Date: 20250724
  Transmission Date: 20251020
  Serious: Yes (Death, Hospitalization)
  Sender: RANBAXY
  Company Number: EU-SUN PHARMACEUTICAL INDUSTRIES LTD-2025RR-515608

PATIENT
  Age: 27 Year
  Sex: Female
  Weight: 66 kg

DRUGS (4)
  1. PANTOPRAZOLE [Suspect]
     Active Substance: PANTOPRAZOLE
     Indication: Gastrooesophageal reflux disease
     Dosage: 1 DOSAGE FORM, DAILY
     Route: 048
     Dates: start: 20250123, end: 20250307
  2. AVASTIN [Suspect]
     Active Substance: BEVACIZUMAB
     Indication: Neoplasm malignant
     Dosage: 7.5 MILLIGRAM/KILOGRAM, 1DOSE/2 WEEKS
     Route: 040
     Dates: start: 20241209, end: 20250127
  3. TOCILIZUMAB [Suspect]
     Active Substance: TOCILIZUMAB
     Indication: Antiinflammatory therapy
     Route: 040
     Dates: start: 20250131, end: 20250131
  4. PIPERACILLIN [Suspect]
     Active Substance: PIPERACILLIN
     Indication: Antibiotic therapy
     Dosage: 4 GRAM, DAILY
     Route: 040
     Dates: start: 20250220

REACTIONS (1)
  - Colitis ulcerative [Fatal]

NARRATIVE: CASE EVENT DATE: 20250224
